FAERS Safety Report 25226742 (Version 3)
Quarter: 2025Q2

REPORT INFORMATION
  Report Type: Report from Study
  Country: CA (occurrence: CA)
  Receive Date: 20250422
  Receipt Date: 20250611
  Transmission Date: 20250716
  Serious: Yes (Other)
  Sender: AMGEN
  Company Number: CA-AMGEN-CANSL2024093651

PATIENT
  Age: 23 Year
  Sex: Female
  Weight: 95.25 kg

DRUGS (9)
  1. AVSOLA [Suspect]
     Active Substance: INFLIXIMAB-AXXQ
     Indication: Hidradenitis
     Dosage: 5MG/KG -INDUCTION AT WEEK 0, 2 AND 6 THEN EVERY 8 WEEKS
     Route: 065
     Dates: start: 20240509
  2. AVSOLA [Suspect]
     Active Substance: INFLIXIMAB-AXXQ
     Route: 065
     Dates: start: 20240621
  3. AVSOLA [Suspect]
     Active Substance: INFLIXIMAB-AXXQ
     Dosage: 5 MILLIGRAM/KILOGRAM, Q8WK (0, 2 AND 6 THEN EVERY 8 WEEKS (485MG))
     Route: 065
  4. AVSOLA [Suspect]
     Active Substance: INFLIXIMAB-AXXQ
     Route: 065
     Dates: start: 20240919
  5. AVSOLA [Suspect]
     Active Substance: INFLIXIMAB-AXXQ
     Dosage: 5 MILLIGRAM/KILOGRAM, Q4WK (500MG)
     Route: 065
  6. AVSOLA [Suspect]
     Active Substance: INFLIXIMAB-AXXQ
     Route: 065
     Dates: start: 20250216
  7. AVSOLA [Suspect]
     Active Substance: INFLIXIMAB-AXXQ
     Dosage: 10 MILLIGRAM/KILOGRAM, Q4WK(1000 MG)
     Route: 065
  8. AVSOLA [Suspect]
     Active Substance: INFLIXIMAB-AXXQ
     Dosage: 10 MILLIGRAM/KILOGRAM, Q4WK (1010MG) CHANGE TO 988MG
     Route: 065
  9. AVSOLA [Suspect]
     Active Substance: INFLIXIMAB-AXXQ
     Dosage: 10 MILLIGRAM/KILOGRAM, Q4WK(984MG)
     Route: 065
     Dates: start: 20250605

REACTIONS (4)
  - Superinfection [Unknown]
  - Abscess [Unknown]
  - Adverse event [Unknown]
  - Off label use [Unknown]

NARRATIVE: CASE EVENT DATE: 20240509
